FAERS Safety Report 16442981 (Version 1)
Quarter: 2019Q2

REPORT INFORMATION
  Report Type: Spontaneous
  Country: DE (occurrence: DE)
  Receive Date: 20190617
  Receipt Date: 20190617
  Transmission Date: 20190711
  Serious: Yes (Other)
  Sender: FDA-Public Use
  Company Number: PHHY2019DE138625

PATIENT
  Age: 77 Year
  Sex: Male

DRUGS (1)
  1. AMOXI 1A PHARMA [Suspect]
     Active Substance: AMOXICILLIN
     Indication: ANTIBIOTIC PROPHYLAXIS
     Dosage: 3 DF, QD
     Route: 065

REACTIONS (1)
  - Intestinal haemorrhage [Unknown]
